FAERS Safety Report 7811453-0 (Version None)
Quarter: 2011Q4

REPORT INFORMATION
  Report Type: 
  Country: None (occurrence: None)
  Receive Date: 20111013
  Receipt Date: 20111011
  Transmission Date: 20120403
  Serious: Yes (Other)
  Sender: FDA-Public Use
  Company Number: US-PFIZER INC-2011176642

PATIENT
  Sex: Female
  Weight: 113 kg

DRUGS (8)
  1. LYRICA [Interacting]
     Indication: OSTEOARTHRITIS
  2. LEVOTHYROXINE SODIUM [Concomitant]
     Indication: HYPOTHYROIDISM
     Dosage: UNK
  3. LEVOTHYROXINE [Concomitant]
     Indication: HYPOTHYROIDISM
     Dosage: UNK
  4. LYRICA [Suspect]
     Indication: ARTHROPATHY
     Dosage: 75 MG, 2X/DAY
     Route: 048
     Dates: start: 20110706, end: 20110101
  5. LYRICA [Interacting]
     Indication: RHEUMATOID ARTHRITIS
     Dosage: UNK, 1X/DAY
     Route: 048
     Dates: start: 20110101, end: 20110901
  6. CELEBREX [Interacting]
     Indication: ARTHROPATHY
     Dosage: 200 MG, 1X/DAY
     Route: 048
     Dates: start: 20110706, end: 20110801
  7. CELEBREX [Interacting]
     Indication: OSTEOARTHRITIS
  8. CELEBREX [Interacting]
     Indication: RHEUMATOID ARTHRITIS
     Dosage: 200 MG, 1X/DAY
     Route: 048
     Dates: start: 20110801, end: 20110901

REACTIONS (10)
  - DRUG INTERACTION [None]
  - PAIN [None]
  - DIARRHOEA [None]
  - ANXIETY [None]
  - ASTHMA [None]
  - NAUSEA [None]
  - DRUG INEFFECTIVE [None]
  - ABDOMINAL DISCOMFORT [None]
  - VITAMIN D DECREASED [None]
  - GAIT DISTURBANCE [None]
